FAERS Safety Report 13424326 (Version 2)
Quarter: 2019Q3

REPORT INFORMATION
  Report Type: Spontaneous
  Country: US (occurrence: US)
  Receive Date: 20170410
  Receipt Date: 20190708
  Transmission Date: 20191004
  Serious: Yes (Other)
  Sender: FDA-Public Use
  Company Number: US-ELI_LILLY_AND_COMPANY-US201704001575

PATIENT
  Sex: Male

DRUGS (1)
  1. CIALIS [Suspect]
     Active Substance: TADALAFIL
     Indication: ERECTILE DYSFUNCTION
     Dosage: UNK, UNKNOWN
     Route: 065
     Dates: start: 20060111, end: 201110

REACTIONS (8)
  - Myocardial infarction [Unknown]
  - Intervertebral disc degeneration [Not Recovered/Not Resolved]
  - Malignant melanoma [Unknown]
  - Renal cell carcinoma [Unknown]
  - Malignant melanoma [Unknown]
  - Scoliosis [Not Recovered/Not Resolved]
  - Bladder cancer [Unknown]
  - Osteoarthritis [Not Recovered/Not Resolved]

NARRATIVE: CASE EVENT DATE: 20090107
